FAERS Safety Report 8455893-8 (Version None)
Quarter: 2012Q2

REPORT INFORMATION
  Report Type: 
  Country: None (occurrence: None)
  Receive Date: 20120323
  Receipt Date: 20110919
  Transmission Date: 20120825
  Serious: Yes (Other)
  Sender: FDA-Public Use
  Company Number: 163-21880-11092398

PATIENT
  Age: 62 Year
  Sex: Male
  Weight: 82.1011 kg

DRUGS (9)
  1. MAGNESIUM SULFATE [Concomitant]
  2. ASCORBIC ACID [Concomitant]
  3. SAW PALMETTO (SERENOA REPENS) [Concomitant]
  4. LENALIDOMIDE [Suspect]
     Indication: 5Q MINUS SYNDROME
     Dosage: 10 MG, QD X 21 DAYS, PO  : 5 MG, QD X 21 DAYS, PO
     Route: 048
     Dates: start: 20110901
  5. LENALIDOMIDE [Suspect]
     Indication: 5Q MINUS SYNDROME
     Dosage: 10 MG, QD X 21 DAYS, PO  : 5 MG, QD X 21 DAYS, PO
     Route: 048
     Dates: start: 20110822
  6. IRON [Concomitant]
  7. PRILOSEC [Concomitant]
  8. GABAPENTIN [Concomitant]
  9. VITAMIN B12 [Concomitant]

REACTIONS (1)
  - PANCYTOPENIA [None]
